FAERS Safety Report 6465890-X (Version None)
Quarter: 2009Q4

REPORT INFORMATION
  Report Type: 
  Country: None (occurrence: None)
  Receive Date: 20091127
  Receipt Date: 20091116
  Transmission Date: 20100525
  Serious: Yes (Hospitalization)
  Sender: FDA-Public Use
  Company Number: 2009AC000283

PATIENT
  Age: 59 Year
  Sex: Female

DRUGS (21)
  1. DIGOXIN [Suspect]
     Dosage: 0.125 MG; QD; PO
     Route: 048
     Dates: start: 20071114
  2. ULTRACET [Concomitant]
  3. LANTUS [Concomitant]
  4. PLAVIX [Concomitant]
  5. CHANTIX [Concomitant]
  6. DEPAKOTE [Concomitant]
  7. LOPID [Concomitant]
  8. MICRO-K [Concomitant]
  9. LASIX [Concomitant]
  10. GENTAMICIN [Concomitant]
  11. PREMARIN [Concomitant]
  12. IMDUR [Concomitant]
  13. EFFEXOR [Concomitant]
  14. PREVACID [Concomitant]
  15. LANTUS [Concomitant]
  16. ATROVENT [Concomitant]
  17. ATIVAN [Concomitant]
  18. VERAPAMIL [Concomitant]
  19. XANEX [Concomitant]
  20. OXYCONTIN [Concomitant]
  21. AMITRIPTYLINE [Concomitant]

REACTIONS (26)
  - ABDOMINAL PAIN [None]
  - ANGINA PECTORIS [None]
  - ANXIETY [None]
  - ASTHMA [None]
  - ATRIAL TACHYCARDIA [None]
  - BACK PAIN [None]
  - CARDIAC FAILURE CONGESTIVE [None]
  - CARDIOACTIVE DRUG LEVEL INCREASED [None]
  - CATARACT [None]
  - CONTUSION [None]
  - CYSTITIS [None]
  - DELUSION [None]
  - DEMENTIA [None]
  - DEPRESSION [None]
  - DIABETES MELLITUS INADEQUATE CONTROL [None]
  - DIARRHOEA [None]
  - DISORIENTATION [None]
  - ECONOMIC PROBLEM [None]
  - FALL [None]
  - HYPONATRAEMIA [None]
  - INSOMNIA [None]
  - MULTIPLE DRUG OVERDOSE [None]
  - MYOCARDIAL INFARCTION [None]
  - PERIPHERAL VASCULAR DISORDER [None]
  - SURGERY [None]
  - TACHYCARDIA PAROXYSMAL [None]
